FAERS Safety Report 19966883 (Version 2)
Quarter: 2021Q4

REPORT INFORMATION
  Report Type: Spontaneous
  Country: VU (occurrence: VU)
  Receive Date: 20211019
  Receipt Date: 20211108
  Transmission Date: 20220303
  Serious: Yes (Death, Hospitalization, Other)
  Sender: FDA-Public Use
  Company Number: VU-NOVARTISPH-NVSC2021VU233793

PATIENT
  Sex: Female

DRUGS (2)
  1. GLIVEC [Suspect]
     Active Substance: IMATINIB MESYLATE
     Indication: Chronic myeloid leukaemia
     Dosage: 200 MG (2 X 100 MG)
     Route: 065
  2. GLIVEC [Suspect]
     Active Substance: IMATINIB MESYLATE
     Dosage: 300 MG (3 X 100MG TABLETS)
     Route: 065

REACTIONS (13)
  - Chronic myeloid leukaemia [Fatal]
  - Oncologic complication [Fatal]
  - Blood glucose abnormal [Unknown]
  - Blood pressure abnormal [Unknown]
  - Pain in extremity [Unknown]
  - Sepsis [Unknown]
  - White blood cell count increased [Unknown]
  - Blast cell count increased [Unknown]
  - Inappropriate schedule of product administration [Unknown]
  - Full blood count abnormal [Unknown]
  - Platelet count decreased [Unknown]
  - Asthenia [Unknown]
  - Chest pain [Unknown]
